FAERS Safety Report 4524586-1 (Version None)
Quarter: 2004Q4

REPORT INFORMATION
  Report Type: 
  Country: None (occurrence: None)
  Receive Date: 20041117
  Receipt Date: 20040623
  Transmission Date: 20050328
  Serious: Yes (Life-Threatening)
  Sender: FDA-Public Use
  Company Number: US-JNJFOC-20040606830

PATIENT
  Age: 66 Year
  Sex: Male
  Weight: 9.0719 kg

DRUGS (2)
  1. LEVOFLOXACIN [Suspect]
     Indication: DRUG USE FOR UNKNOWN INDICATION
     Dates: start: 20031225, end: 20031225
  2. WELLBUTRIN [Suspect]
     Indication: EX-SMOKER
     Dosage: ORAL
     Route: 048
     Dates: end: 20031225

REACTIONS (1)
  - ANAPHYLACTOID REACTION [None]
